FAERS Safety Report 13745396 (Version 2)
Quarter: 2017Q3

REPORT INFORMATION
  Report Type: Spontaneous
  Country: US (occurrence: US)
  Receive Date: 20170712
  Receipt Date: 20170823
  Transmission Date: 20171127
  Serious: Yes (Other)
  Sender: FDA-Public Use
  Company Number: US-ASTRAZENECA-2017SE70273

PATIENT
  Age: 26656 Day
  Sex: Male
  Weight: 86.2 kg

DRUGS (16)
  1. GLIPIZIDE. [Concomitant]
     Active Substance: GLIPIZIDE
  2. METFORMIN [Concomitant]
     Active Substance: METFORMIN HYDROCHLORIDE
     Indication: DIABETES MELLITUS
  3. ACETYLSALICYLIC ACID [Concomitant]
     Active Substance: ASPIRIN
  4. FOSINOPRIL [Concomitant]
     Active Substance: FOSINOPRIL
  5. COREG [Concomitant]
     Active Substance: CARVEDILOL
  6. JANUVIA [Concomitant]
     Active Substance: SITAGLIPTIN PHOSPHATE
     Indication: DIABETES MELLITUS
  7. SPIRONOLACTONE. [Concomitant]
     Active Substance: SPIRONOLACTONE
  8. BYDUREON [Suspect]
     Active Substance: EXENATIDE
     Indication: TYPE 2 DIABETES MELLITUS
     Route: 058
     Dates: start: 20170327, end: 20170430
  9. ALDACTONE [Concomitant]
     Active Substance: SPIRONOLACTONE
     Indication: DIABETES MELLITUS
  10. NASONEX [Concomitant]
     Active Substance: MOMETASONE FUROATE
     Dosage: DAILY
  11. CARVEDILOL. [Concomitant]
     Active Substance: CARVEDILOL
  12. ALLOPURINOL. [Concomitant]
     Active Substance: ALLOPURINOL
  13. ATORVASTATIN [Concomitant]
     Active Substance: ATORVASTATIN
  14. XARELTO [Concomitant]
     Active Substance: RIVAROXABAN
  15. FOSINOPRIL [Concomitant]
     Active Substance: FOSINOPRIL
  16. COLCRYS [Concomitant]
     Active Substance: COLCHICINE

REACTIONS (5)
  - Injection site pain [Unknown]
  - Hypersensitivity [Recovered/Resolved]
  - Paraesthesia oral [Unknown]
  - Injection site rash [Unknown]
  - Eyelid oedema [Unknown]

NARRATIVE: CASE EVENT DATE: 20170430
